FAERS Safety Report 17860478 (Version 2)
Quarter: 2020Q3

REPORT INFORMATION
  Report Type: Spontaneous
  Country: US (occurrence: US)
  Receive Date: 20200604
  Receipt Date: 20200701
  Transmission Date: 20201103
  Serious: No
  Sender: FDA-Public Use
  Company Number: US-ASTRAZENECA-2020SE44286

PATIENT
  Sex: Female

DRUGS (2)
  1. LOVOLOG INSULIN [Concomitant]
     Indication: DIABETES MELLITUS
  2. SYMLIN [Suspect]
     Active Substance: PRAMLINTIDE ACETATE
     Indication: TYPE 1 DIABETES MELLITUS
     Route: 058
     Dates: start: 20151113

REACTIONS (3)
  - Incorrect dose administered by device [Unknown]
  - Blood glucose increased [Recovered/Resolved]
  - Device issue [Unknown]
